FAERS Safety Report 24557523 (Version 1)
Quarter: 2024Q4

REPORT INFORMATION
  Report Type: Spontaneous
  Country: PL (occurrence: PL)
  Receive Date: 20241028
  Receipt Date: 20241028
  Transmission Date: 20250115
  Serious: Yes (Other)
  Sender: AMGEN
  Company Number: PL-AMGEN-POLSP2024211145

PATIENT
  Age: 61 Year
  Sex: Male

DRUGS (8)
  1. BEVACIZUMAB [Suspect]
     Active Substance: BEVACIZUMAB
     Indication: Colon cancer metastatic
     Dosage: UNK
     Route: 065
     Dates: start: 202207
  2. CAPECITABINE [Suspect]
     Active Substance: CAPECITABINE
     Indication: Colon cancer metastatic
     Dosage: 3 CYCLES
     Route: 065
     Dates: start: 202309
  3. OXALIPLATIN [Suspect]
     Active Substance: OXALIPLATIN
     Indication: Colon cancer metastatic
     Dosage: UNK, 5MG/L ML
     Route: 065
     Dates: start: 202207
  4. LEUCOVORIN [Suspect]
     Active Substance: LEUCOVORIN\LEUCOVORIN CALCIUM
     Indication: Colon cancer metastatic
     Dosage: UNK
     Route: 065
     Dates: start: 202207
  5. REGORAFENIB [Concomitant]
     Active Substance: REGORAFENIB
     Indication: Colon cancer metastatic
     Dosage: 3 CYCLES
     Route: 065
     Dates: start: 202302
  6. TRIFLURIDINE [Concomitant]
     Active Substance: TRIFLURIDINE
     Indication: Colon cancer metastatic
     Dosage: 2 CYCLES
     Route: 065
     Dates: start: 202306
  7. TIPIRACIL [Concomitant]
     Active Substance: TIPIRACIL
     Indication: Colon cancer metastatic
     Dosage: 2 CYCLES
     Route: 065
     Dates: start: 202306
  8. ALECTINIB [Concomitant]
     Active Substance: ALECTINIB
     Indication: Colon cancer metastatic
     Route: 065

REACTIONS (1)
  - Colon cancer metastatic [Unknown]
